FAERS Safety Report 13565349 (Version 1)
Quarter: 2017Q2

REPORT INFORMATION
  Report Type: Report from Study
  Country: CA (occurrence: CA)
  Receive Date: 20170519
  Receipt Date: 20170519
  Transmission Date: 20170830
  Serious: Yes (Death, Hospitalization)
  Sender: FDA-Public Use
  Company Number: CA-SA-2017SA091870

PATIENT
  Age: 70 Year
  Sex: Female

DRUGS (2)
  1. FLUDARABINE PHOSPHATE. [Suspect]
     Active Substance: FLUDARABINE PHOSPHATE
     Indication: CHEMOTHERAPY
     Route: 042
  2. FLUDARABINE PHOSPHATE. [Suspect]
     Active Substance: FLUDARABINE PHOSPHATE
     Indication: CHEMOTHERAPY
     Route: 042

REACTIONS (6)
  - Abdominal pain [Unknown]
  - Splenomegaly [Unknown]
  - Pyrexia [Unknown]
  - Gastrointestinal candidiasis [Fatal]
  - Bronchopulmonary aspergillosis [Fatal]
  - Neutropenia [Unknown]
